FAERS Safety Report 20163921 (Version 5)
Quarter: 2022Q4

REPORT INFORMATION
  Report Type: Report from Study
  Country: DE (occurrence: DE)
  Receive Date: 20211209
  Receipt Date: 20221002
  Transmission Date: 20230113
  Serious: Yes (Hospitalization)
  Sender: FDA-Public Use
  Company Number: DE-NOVARTISPH-NVSC2021DE248061

PATIENT
  Age: 60 Year
  Sex: Male
  Weight: 73.1 kg

DRUGS (6)
  1. INVESTIGATIONAL PRODUCT [Suspect]
     Active Substance: INVESTIGATIONAL PRODUCT
     Indication: Cardiovascular disorder
     Dosage: CODE NOT BROKEN
     Route: 058
     Dates: start: 20210928
  2. PLACEBO [Suspect]
     Active Substance: UNSPECIFIED INGREDIENT
     Indication: Cardiovascular disorder
     Dosage: CODE NOT BROKEN
     Route: 058
     Dates: start: 20210928
  3. PELACARSEN [Suspect]
     Active Substance: PELACARSEN
     Indication: Cardiovascular disorder
     Dosage: CODE NOT BROKEN
     Route: 058
     Dates: start: 20210928
  4. PRASUGREL HYDROCHLORIDE [Suspect]
     Active Substance: PRASUGREL HYDROCHLORIDE
     Indication: Coronary arterial stent insertion
     Dosage: UNK
     Route: 065
     Dates: start: 20210418, end: 20211103
  5. RAMIPRIL [Concomitant]
     Active Substance: RAMIPRIL
     Indication: Coronary artery disease
     Dosage: UNK
     Route: 065
     Dates: start: 20210604, end: 20211104
  6. METOPROLOL [Concomitant]
     Active Substance: METOPROLOL
     Indication: Coronary artery disease
     Dosage: UNK
     Route: 065
     Dates: start: 20210604

REACTIONS (2)
  - Gastric haemorrhage [Recovered/Resolved]
  - Helicobacter infection [Recovered/Resolved]

NARRATIVE: CASE EVENT DATE: 20211027
